FAERS Safety Report 10614758 (Version 1)
Quarter: 2014Q4

REPORT INFORMATION
  Report Type: Spontaneous
  Country: FI (occurrence: FI)
  Receive Date: 20141201
  Receipt Date: 20141201
  Transmission Date: 20150529
  Serious: Yes (Death, Other)
  Sender: FDA-Public Use
  Company Number: FI-ROCHE-1498403

PATIENT
  Age: 37 Year

DRUGS (12)
  1. 5-FLUOROURACIL [Concomitant]
     Active Substance: FLUOROURACIL
     Dosage: 6 TREATMENT CYCLES
     Route: 065
     Dates: start: 201211
  2. 5-FLUOROURACIL [Concomitant]
     Active Substance: FLUOROURACIL
     Indication: BREAST CANCER
     Dosage: 3 TREATMENT CYCLES
     Route: 065
     Dates: start: 2010
  3. DOCETAXEL. [Concomitant]
     Active Substance: DOCETAXEL
     Indication: BREAST CANCER
     Dosage: 3 TREATMENT CYCLES
     Route: 065
     Dates: start: 2010
  4. CYCLOPHOSPHAMIDE. [Concomitant]
     Active Substance: CYCLOPHOSPHAMIDE
     Indication: BREAST CANCER
     Dosage: 3 TREATMENT CYCLES
     Route: 065
     Dates: start: 2010
  5. REMICADE [Concomitant]
     Active Substance: INFLIXIMAB
     Indication: CROHN^S DISEASE
  6. AZAMUN [Concomitant]
     Indication: CROHN^S DISEASE
  7. CYCLOPHOSPHAMIDE. [Concomitant]
     Active Substance: CYCLOPHOSPHAMIDE
     Dosage: 6 TREATMENT CYCLES
     Route: 065
     Dates: start: 201211
  8. ERIBULIN [Concomitant]
     Active Substance: ERIBULIN
     Indication: BREAST CANCER
     Dosage: 4 TREATMENT CYCLES
     Route: 065
     Dates: start: 201302
  9. DOCETAXEL. [Concomitant]
     Active Substance: DOCETAXEL
     Dosage: 3 TREATMENT CYCLES
     Route: 065
     Dates: start: 2012
  10. EPIRUBICIN [Concomitant]
     Active Substance: EPIRUBICIN
     Dosage: 6 TREATMENT CYCLES
     Route: 065
     Dates: start: 201211
  11. CAPECITABINE. [Suspect]
     Active Substance: CAPECITABINE
     Indication: BREAST CANCER
     Dosage: 3 TREATMENT CYCLES
     Route: 048
     Dates: start: 2012
  12. EPIRUBICIN [Concomitant]
     Active Substance: EPIRUBICIN
     Indication: BREAST CANCER
     Dosage: 3 TREATMENT CYCLES
     Route: 065
     Dates: start: 2010

REACTIONS (4)
  - Metastases to skin [Fatal]
  - Breast neoplasm [Fatal]
  - No therapeutic response [Unknown]
  - Disease progression [Fatal]

NARRATIVE: CASE EVENT DATE: 2012
